FAERS Safety Report 11026373 (Version 2)
Quarter: 2015Q2

REPORT INFORMATION
  Report Type: Spontaneous
  Country: LB (occurrence: LB)
  Receive Date: 20150414
  Receipt Date: 20150520
  Transmission Date: 20150821
  Serious: Yes (Death, Other)
  Sender: FDA-Public Use
  Company Number: LB-GILEAD-2015-0148130

PATIENT
  Age: 64 Year
  Sex: Male

DRUGS (3)
  1. SOVALDI [Suspect]
     Active Substance: SOFOSBUVIR
     Indication: CHRONIC HEPATITIS C
     Dosage: 400 MG, QD
     Route: 065
     Dates: start: 201503
  2. DACLATASVIR [Suspect]
     Active Substance: DACLATASVIR
     Indication: CHRONIC HEPATITIS C
     Dosage: 60 MG, QD
     Route: 065
     Dates: start: 201503
  3. SOVALDI [Suspect]
     Active Substance: SOFOSBUVIR
     Dosage: 200 MG, QD
     Route: 065
     Dates: start: 2015

REACTIONS (5)
  - Blood creatinine increased [Recovered/Resolved]
  - Coma [Unknown]
  - Glomerulonephritis membranoproliferative [Unknown]
  - Urosepsis [Fatal]
  - Ecthyma [Unknown]

NARRATIVE: CASE EVENT DATE: 2015
